FAERS Safety Report 8525035-9 (Version None)
Quarter: 2012Q3

REPORT INFORMATION
  Report Type: 
  Country: None (occurrence: None)
  Receive Date: 20120720
  Receipt Date: 20120712
  Transmission Date: 20120928
  Serious: Yes (Other)
  Sender: FDA-Public Use
  Company Number: GB-BRISTOL-MYERS SQUIBB COMPANY-16765521

PATIENT
  Sex: Male

DRUGS (1)
  1. ABILIFY [Suspect]
     Dosage: FOR A COUPLE OF MONTHS

REACTIONS (1)
  - PSYCHOTIC DISORDER [None]
